FAERS Safety Report 24178119 (Version 1)
Quarter: 2024Q3

REPORT INFORMATION
  Report Type: Spontaneous
  Country: US (occurrence: None)
  Receive Date: 20240802
  Receipt Date: 20240802
  Transmission Date: 20241016
  Serious: Yes (Other)
  Sender: Public
  Company Number: None

PATIENT
  Age: 74 Year
  Sex: Male
  Weight: 80.74 kg

DRUGS (9)
  1. INBRIJA [Suspect]
     Active Substance: LEVODOPA
     Dosage: FREQUENCY : AS NEEDED;?
     Dates: start: 20230314, end: 20230901
  2. CARBIDOPA\LEVODOPA [Concomitant]
     Active Substance: CARBIDOPA\LEVODOPA
  3. LEXAPRO [Concomitant]
  4. FINASTERIDE [Concomitant]
  5. METOPROLOL [Concomitant]
  6. FUROSEMIDE [Concomitant]
  7. XARELTO [Concomitant]
  8. SILODOSIN [Concomitant]
  9. DIOVAN [Concomitant]

REACTIONS (2)
  - Dyspnoea [None]
  - Pleural effusion [None]

NARRATIVE: CASE EVENT DATE: 20231128
